FAERS Safety Report 9143281 (Version 1)
Quarter: 2013Q1

REPORT INFORMATION
  Report Type: Spontaneous
  Country: US (occurrence: US)
  Receive Date: 20130306
  Receipt Date: 20130306
  Transmission Date: 20140127
  Serious: No
  Sender: FDA-Public Use
  Company Number: US-ENDO PHARMACEUTICALS INC.-OPER20110266

PATIENT
  Age: 34 None
  Sex: Female
  Weight: 54.48 kg

DRUGS (1)
  1. OPANA ER 30MG [Suspect]
     Indication: PAIN
     Route: 048
     Dates: start: 20110926, end: 20110927

REACTIONS (7)
  - Skin burning sensation [Recovered/Resolved]
  - Sensation of heaviness [Recovered/Resolved]
  - Movement disorder [Recovered/Resolved]
  - Erythema [Recovered/Resolved]
  - Rash macular [Not Recovered/Not Resolved]
  - Heart rate increased [Recovered/Resolved]
  - Drug ineffective [Unknown]
